FAERS Safety Report 6327470-6 (Version None)
Quarter: 2009Q3

REPORT INFORMATION
  Report Type: 
  Country: None (occurrence: None)
  Receive Date: 20090821
  Receipt Date: 20090813
  Transmission Date: 20100115
  Serious: Yes (Other)
  Sender: FDA-Public Use
  Company Number: GXKR2009IN09184

PATIENT
  Age: 9 Year
  Sex: Female

DRUGS (4)
  1. VINCRISTINE [Suspect]
     Indication: CHRONIC MYELOID LEUKAEMIA
  2. DOXORUBICIN HCL [Suspect]
     Indication: CHRONIC MYELOID LEUKAEMIA
  3. DEXAMETHASONE [Suspect]
     Indication: CHRONIC MYELOID LEUKAEMIA
  4. ASPARAGINASE (ASPARAGINASE) [Suspect]
     Indication: CHRONIC MYELOID LEUKAEMIA

REACTIONS (4)
  - BLINDNESS TRANSIENT [None]
  - BLOOD PRESSURE INCREASED [None]
  - GRAND MAL CONVULSION [None]
  - REVERSIBLE POSTERIOR LEUKOENCEPHALOPATHY SYNDROME [None]
